FAERS Safety Report 14924613 (Version 2)
Quarter: 2018Q2

REPORT INFORMATION
  Report Type: Spontaneous
  Country: HR (occurrence: HR)
  Receive Date: 20180522
  Receipt Date: 20180531
  Transmission Date: 20180711
  Serious: Yes (Other)
  Sender: FDA-Public Use
  Company Number: HR-ASTRAZENECA-2018SE66181

PATIENT

DRUGS (9)
  1. DOCETAXEL. [Suspect]
     Active Substance: DOCETAXEL
     Indication: BREAST CANCER METASTATIC
     Route: 065
  2. CYCLOPHOSPHAMIDE. [Suspect]
     Active Substance: CYCLOPHOSPHAMIDE
     Indication: BREAST CANCER METASTATIC
     Route: 065
  3. FULVESTRANT. [Suspect]
     Active Substance: FULVESTRANT
     Indication: BREAST CANCER METASTATIC
     Dosage: UNK
     Route: 030
     Dates: start: 201204, end: 201711
  4. EXEMESTANE. [Suspect]
     Active Substance: EXEMESTANE
     Indication: BREAST CANCER METASTATIC
     Dosage: UNK
     Route: 065
     Dates: start: 2003, end: 2006
  5. EPIRUBICIN [Suspect]
     Active Substance: EPIRUBICIN
     Indication: BREAST CANCER METASTATIC
     Route: 065
  6. CAPECITABINE. [Suspect]
     Active Substance: CAPECITABINE
     Indication: BREAST CANCER METASTATIC
     Route: 065
  7. TAMOXIFEN [Suspect]
     Active Substance: TAMOXIFEN
     Indication: BREAST CANCER METASTATIC
     Dosage: UNK
     Route: 048
     Dates: start: 200109, end: 200212
  8. FLUOROURACIL. [Suspect]
     Active Substance: FLUOROURACIL
     Indication: BREAST CANCER METASTATIC
     Route: 065
  9. CISPLATIN. [Suspect]
     Active Substance: CISPLATIN
     Indication: BREAST CANCER METASTATIC
     Route: 065

REACTIONS (4)
  - Lymphadenopathy mediastinal [Unknown]
  - Malignant neoplasm progression [Unknown]
  - Breast cancer recurrent [Unknown]
  - Breast cancer metastatic [Unknown]

NARRATIVE: CASE EVENT DATE: 201711
